FAERS Safety Report 14628832 (Version 1)
Quarter: 2018Q1

REPORT INFORMATION
  Report Type: Spontaneous
  Country: FR (occurrence: FR)
  Receive Date: 20180313
  Receipt Date: 20180313
  Transmission Date: 20180509
  Serious: Yes (Other)
  Sender: FDA-Public Use
  Company Number: FR-MERCK KGAA-2043568

PATIENT
  Age: 33 Year
  Sex: Female

DRUGS (3)
  1. NOVOTHYROX [Suspect]
     Active Substance: LEVOTHYROXINE SODIUM
     Indication: THYROID FUNCTION TEST ABNORMAL
     Dates: start: 2017
  2. LEVOTHYROX NF [Suspect]
     Active Substance: LEVOTHYROXINE SODIUM
     Dates: start: 2017
  3. LEVOTHYROX NF [Suspect]
     Active Substance: LEVOTHYROXINE SODIUM

REACTIONS (23)
  - Corneal irritation [None]
  - Palpitations [None]
  - Trichorrhexis [None]
  - Headache [None]
  - Tremor [None]
  - Dizziness [None]
  - Dyspepsia [None]
  - Fatigue [None]
  - Constipation [None]
  - Myalgia [None]
  - Decreased appetite [None]
  - Vertigo [None]
  - Menstrual disorder [None]
  - Weight increased [None]
  - Somnolence [None]
  - Hyperthyroidism [None]
  - Dyspnoea [None]
  - Arthralgia [None]
  - Hair texture abnormal [None]
  - Loss of personal independence in daily activities [None]
  - Migraine [None]
  - Mood swings [None]
  - Asthenia [None]

NARRATIVE: CASE EVENT DATE: 2017
